FAERS Safety Report 8344732-1 (Version None)
Quarter: 2012Q2

REPORT INFORMATION
  Report Type: 
  Country: None (occurrence: None)
  Receive Date: 20120508
  Receipt Date: 20120425
  Transmission Date: 20120825
  Serious: Yes (Hospitalization)
  Sender: FDA-Public Use
  Company Number: ES-PFIZER INC-2012104217

PATIENT
  Age: 55 Year
  Sex: Female

DRUGS (11)
  1. OMEPRAZOLE [Concomitant]
     Indication: PROPHYLAXIS
     Dosage: 20 MG, 1X/DAY
     Route: 048
     Dates: start: 20100201, end: 20110612
  2. ALMAGATE [Concomitant]
     Dosage: UNK
  3. ROMILAR [Concomitant]
     Dosage: UNK
  4. ACFOL [Concomitant]
     Dosage: UNK
  5. OPTOVITE B12 [Concomitant]
     Dosage: UNK
  6. DURAGESIC-100 [Interacting]
     Indication: PAIN
     Dosage: 50 UG
     Route: 062
     Dates: end: 20110613
  7. CELEBREX [Concomitant]
     Indication: PAIN
     Dosage: 200 MG, 1X/DAY
     Route: 048
     Dates: start: 20100201, end: 20110612
  8. ALPRAZOLAM [Suspect]
     Indication: ANXIETY
     Dosage: 1 MG
     Route: 048
     Dates: start: 20080701, end: 20110612
  9. IBUPROFEN [Concomitant]
     Indication: PAIN
     Dosage: 600 MG, 1X/DAY
     Route: 048
  10. MORPHINE SULFATE [Interacting]
     Indication: PAIN
     Dosage: 10 MG
     Route: 048
     Dates: end: 20110612
  11. BUDESONIDE [Concomitant]
     Dosage: UNK

REACTIONS (3)
  - RESPIRATORY DEPRESSION [None]
  - DEPRESSED LEVEL OF CONSCIOUSNESS [None]
  - DRUG INTERACTION [None]
